FAERS Safety Report 5785156-0 (Version None)
Quarter: 2008Q2

REPORT INFORMATION
  Report Type: 
  Country: None (occurrence: None)
  Receive Date: 20080624
  Receipt Date: 20070430
  Transmission Date: 20081010
  Serious: No
  Sender: FDA-Public Use
  Company Number: US-ASTRAZENECA-2007UW08947

PATIENT
  Age: 67 Year
  Sex: Female
  Weight: 86.2 kg

DRUGS (5)
  1. PULMICORT FLEXHALER [Suspect]
     Indication: ASTHMA
     Route: 055
  2. TRIAMTERENE [Concomitant]
  3. TOPROL-XL [Concomitant]
  4. PREDNISONE TAB [Concomitant]
     Dosage: HIGH DOSE
  5. SINGULAIR [Concomitant]

REACTIONS (1)
  - BLOOD PRESSURE INCREASED [None]
